FAERS Safety Report 5264688-8 (Version None)
Quarter: 2007Q1

REPORT INFORMATION
  Report Type: 
  Country: None (occurrence: None)
  Receive Date: 20061124
  Receipt Date: 20041004
  Transmission Date: 20070707
  Serious: Yes (Hospitalization)
  Sender: FDA-Public Use
  Company Number: 2004SE05507

PATIENT
  Age: 54 Year
  Sex: Female

DRUGS (8)
  1. LOSEC [Suspect]
     Indication: GASTROOESOPHAGEAL REFLUX DISEASE
     Dosage: 20 MG DAILY PO
     Route: 048
     Dates: end: 20040101
  2. ACETAMINOPHEN AND OXYCODONE HCL [Suspect]
     Dosage: DAILY DOSE: 5-500 MG
  3. PEG-INTRON [Suspect]
     Indication: HEPATITIS C
     Dosage: 120 UG DAILY SQ
     Route: 058
     Dates: start: 20040303
  4. COPEGUS [Suspect]
     Indication: HEPATITIS C
     Dosage: 1000 MG DAILY PO
     Route: 048
     Dates: start: 20040303
  5. DURAGESIC-100 [Suspect]
     Indication: PAIN
     Dosage: 50 UG DAILY TD
     Dates: end: 20040101
  6. CLONIDINE [Concomitant]
  7. COLACE [Concomitant]
  8. PAROXETINE HYDROCHLORIDE [Concomitant]

REACTIONS (1)
  - HALLUCINATION, VISUAL [None]
